FAERS Safety Report 12749232 (Version 1)
Quarter: 2016Q3

REPORT INFORMATION
  Report Type: Spontaneous
  Country: US (occurrence: US)
  Receive Date: 20160915
  Receipt Date: 20160915
  Transmission Date: 20161109
  Serious: No
  Sender: FDA-Public Use
  Company Number: US-ASTELLAS-2016US013322

PATIENT
  Age: 65 Year
  Sex: Male

DRUGS (2)
  1. XTANDI [Suspect]
     Active Substance: ENZALUTAMIDE
     Route: 048
  2. XTANDI [Suspect]
     Active Substance: ENZALUTAMIDE
     Dosage: 40 UNK, UNK
     Route: 065

REACTIONS (3)
  - Chest pain [Unknown]
  - Muscular weakness [Unknown]
  - Confusional state [Unknown]

NARRATIVE: CASE EVENT DATE: 20160320
